FAERS Safety Report 4294808-3 (Version None)
Quarter: 2004Q1

REPORT INFORMATION
  Report Type: 
  Country: None (occurrence: None)
  Receive Date: 20040216
  Receipt Date: 20030102
  Transmission Date: 20041129
  Serious: No
  Sender: FDA-Public Use
  Company Number: US-GLAXOSMITHKLINE-A0390373A

PATIENT
  Age: 19 Year
  Sex: Male

DRUGS (5)
  1. LAMICTAL [Suspect]
     Dosage: 150MG PER DAY
     Route: 048
     Dates: start: 20020601
  2. NEURONTIN [Concomitant]
  3. PROZAC [Concomitant]
  4. RITALIN [Concomitant]
  5. TRAZODONE HCL [Concomitant]

REACTIONS (2)
  - DIZZINESS [None]
  - MYASTHENIC SYNDROME [None]
